FAERS Safety Report 8229781-6 (Version None)
Quarter: 2012Q1

REPORT INFORMATION
  Report Type: 
  Country: None (occurrence: None)
  Receive Date: 20120322
  Receipt Date: 20120313
  Transmission Date: 20120608
  Serious: Yes (Disabling, Other)
  Sender: FDA-Public Use
  Company Number: CA-ASTRAZENECA-2012SE14609

PATIENT
  Age: 52 Year
  Sex: Female
  Weight: 68.5 kg

DRUGS (6)
  1. PREDNISONE TAB [Concomitant]
     Dosage: 50 MG FOR 7 DAYS AND 25 MG FOR 7 DAYS
  2. SYMBICORT [Suspect]
     Indication: BRONCHITIS
     Dosage: 200 MCG, TWO INHALATIONS QID (FOUR TIMES A DAY), DAILY DOSE OF 1600 MCG
     Route: 055
     Dates: start: 20120202, end: 20120220
  3. CORTISONE ACETATE [Concomitant]
     Dosage: 50 MG DAILY, 50 MG DECREASING DOSE
     Route: 048
     Dates: end: 20120221
  4. BRONCHODILATOR [Concomitant]
  5. VENTOLIN [Concomitant]
     Dosage: 2 INHALATIONS FOUR TIMES A DAY AS NEEDED
     Route: 055
     Dates: start: 20120215
  6. FLOVENT [Concomitant]
     Dosage: 125 MG, 1-2 INHALATIONS TWO TIMES A DAY

REACTIONS (6)
  - HYPERTENSION [None]
  - DYSPNOEA [None]
  - CHEST PAIN [None]
  - HEART RATE INCREASED [None]
  - SPEECH DISORDER [None]
  - BRONCHITIS [None]
